FAERS Safety Report 25866705 (Version 1)
Quarter: 2025Q3

REPORT INFORMATION
  Report Type: Spontaneous
  Country: US (occurrence: US)
  Receive Date: 20250930
  Receipt Date: 20250930
  Transmission Date: 20251020
  Serious: No
  Sender: SANOFI AVENTIS
  Company Number: US-SA-2025SA291506

PATIENT
  Sex: Male

DRUGS (1)
  1. DUPIXENT [Suspect]
     Active Substance: DUPILUMAB
     Indication: Asthma
     Dosage: EVERY 2 WEEK
     Route: 058
     Dates: start: 2024

REACTIONS (2)
  - Fatigue [Not Recovered/Not Resolved]
  - Somnolence [Unknown]
